FAERS Safety Report 7078269-7 (Version None)
Quarter: 2010Q4

REPORT INFORMATION
  Report Type: 
  Country: None (occurrence: None)
  Receive Date: 20101101
  Receipt Date: 20101101
  Transmission Date: 20110411
  Serious: Yes (Hospitalization)
  Sender: FDA-Public Use
  Company Number: None

PATIENT
  Age: 68 Year
  Sex: Female
  Weight: 59 kg

DRUGS (13)
  1. CETUXIMAB [Suspect]
     Indication: SQUAMOUS CELL CARCINOMA
     Dosage: 400 MG/M2, LOADING, IV ; 250 MG/M2, IV
     Route: 042
     Dates: start: 20100721, end: 20101027
  2. CETUXIMAB [Suspect]
     Indication: SQUAMOUS CELL CARCINOMA
     Dosage: 400 MG/M2, LOADING, IV ; 250 MG/M2, IV
     Route: 042
     Dates: start: 20100714
  3. CLONIDINE [Concomitant]
  4. PAXIL [Concomitant]
  5. SYNTHROID [Concomitant]
  6. OMEPRAZOLE [Concomitant]
  7. KLONOPIN [Concomitant]
  8. PERCOCET [Concomitant]
  9. FENTANYL [Concomitant]
  10. HYDROCHLOROTHIAZIDE [Concomitant]
  11. NYSTATIN [Concomitant]
  12. LORATADINE [Concomitant]
  13. MINOCYCLINE HCL [Concomitant]

REACTIONS (2)
  - PAIN [None]
  - TUMOUR PAIN [None]
